FAERS Safety Report 22253390 (Version 1)
Quarter: 2023Q2

REPORT INFORMATION
  Report Type: Spontaneous
  Country: DE (occurrence: DE)
  Receive Date: 20230426
  Receipt Date: 20230426
  Transmission Date: 20230722
  Serious: Yes (Other)
  Sender: FDA-Public Use
  Company Number: DE-002147023-NVSC2023DE092916

PATIENT
  Age: 79 Year
  Sex: Male

DRUGS (3)
  1. BEOVU [Suspect]
     Active Substance: BROLUCIZUMAB-DBLL
     Indication: Diabetic retinal oedema
     Dosage: UNK INJECTION (BOTH EYES) (FIRST INJECTION)
     Route: 047
     Dates: start: 202212
  2. BEOVU [Suspect]
     Active Substance: BROLUCIZUMAB-DBLL
     Dosage: UNK INJECTION (BOTH EYES) (SECOND INJECTION)
     Route: 047
  3. BEOVU [Suspect]
     Active Substance: BROLUCIZUMAB-DBLL
     Dosage: UNK INJECTION (BOTH EYES) (THIRD INJECTION)
     Route: 047

REACTIONS (1)
  - Urinary retention [Not Recovered/Not Resolved]
